FAERS Safety Report 25550051 (Version 1)
Quarter: 2025Q3

REPORT INFORMATION
  Report Type: Spontaneous
  Country: US (occurrence: US)
  Receive Date: 20250714
  Receipt Date: 20250714
  Transmission Date: 20251020
  Serious: Yes (Other)
  Sender: ROCHE
  Company Number: US-ROCHE-10000336581

PATIENT
  Age: 42 Year
  Sex: Male

DRUGS (5)
  1. MYCOPHENOLATE MOFETIL [Suspect]
     Active Substance: MYCOPHENOLATE MOFETIL
     Indication: Prophylaxis against transplant rejection
     Route: 065
  2. TACROLIMUS [Suspect]
     Active Substance: TACROLIMUS
     Indication: Prophylaxis against transplant rejection
     Route: 065
  3. BASILIXIMAB [Concomitant]
     Active Substance: BASILIXIMAB
  4. ACYCLOVIR [Concomitant]
     Active Substance: ACYCLOVIR
  5. CYCLOSPORINE [Concomitant]
     Active Substance: CYCLOSPORINE

REACTIONS (2)
  - Parvovirus B19 infection [Not Recovered/Not Resolved]
  - Anaemia [Recovered/Resolved]
